FAERS Safety Report 23560249 (Version 2)
Quarter: 2024Q1

REPORT INFORMATION
  Report Type: Spontaneous
  Country: DE (occurrence: DE)
  Receive Date: 20240223
  Receipt Date: 20240318
  Transmission Date: 20240410
  Serious: Yes (Hospitalization, Other)
  Sender: FDA-Public Use
  Company Number: None

PATIENT
  Age: 3 Year
  Sex: Female
  Weight: 11 kg

DRUGS (5)
  1. CYCLOSPORINE [Suspect]
     Active Substance: CYCLOSPORINE
     Indication: Immunosuppression
     Dosage: 56 MG, QD (EVERY DAYS)
     Route: 048
     Dates: start: 20160414
  2. CYCLOSPORINE [Suspect]
     Active Substance: CYCLOSPORINE
     Dosage: 28 MG, BID 1-0-1
     Route: 048
     Dates: start: 20160414
  3. URSODIOL [Concomitant]
     Active Substance: URSODIOL
     Dosage: 100 MG, QD (EVERY DAYS)
     Route: 048
     Dates: start: 20151029
  4. URSODIOL [Concomitant]
     Active Substance: URSODIOL
     Dosage: 50 MG
     Route: 065
     Dates: start: 20151029
  5. MAGNESIUM ASPARTATE HYDROCHLORIDE [Concomitant]
     Active Substance: MAGNESIUM ASPARTATE HYDROCHLORIDE
     Indication: Blood magnesium increased
     Dosage: 5 MMOL, QD (EVERY DAYS)
     Route: 048
     Dates: start: 20160414

REACTIONS (12)
  - Micturition frequency decreased [Recovered/Resolved]
  - Hypophagia [Recovered/Resolved]
  - Vomiting [Recovered/Resolved]
  - Fluid intake reduced [Recovered/Resolved]
  - Gastroenteritis [Recovered/Resolved]
  - Pyrexia [Recovered/Resolved]
  - Metabolic acidosis [Recovered/Resolved]
  - Water pollution [Recovered/Resolved]
  - Body temperature abnormal [Recovered/Resolved]
  - Micturition disorder [Recovered/Resolved]
  - Metabolic acidosis [Recovered/Resolved]
  - Eating disorder [Recovered/Resolved]

NARRATIVE: CASE EVENT DATE: 20181024
